FAERS Safety Report 19754674 (Version 1)
Quarter: 2021Q3

REPORT INFORMATION
  Report Type: Spontaneous
  Country: US (occurrence: US)
  Receive Date: 20210825
  Receipt Date: 20210825
  Transmission Date: 20211014
  Serious: No
  Sender: FDA-Public Use
  Company Number: None

PATIENT
  Age: 73 Year
  Sex: Female

DRUGS (1)
  1. DEFEROXAMINE MESYL SDV 2GM APP (FRESENIUS KABI) [Suspect]
     Active Substance: DEFEROXAMINE MESYLATE
     Indication: HAEMOCHROMATOSIS
     Dosage: ?          OTHER FREQUENCY:ONCE NIGHTLY ;?
     Route: 042
     Dates: start: 20200715

REACTIONS (2)
  - Product dose omission issue [None]
  - Product dispensing error [None]

NARRATIVE: CASE EVENT DATE: 20210413
